FAERS Safety Report 9128197 (Version 2)
Quarter: 2013Q2

REPORT INFORMATION
  Report Type: Spontaneous
  Country: BR (occurrence: BR)
  Receive Date: 20130228
  Receipt Date: 20130404
  Transmission Date: 20140414
  Serious: Yes (Other)
  Sender: FDA-Public Use
  Company Number: PHHY2013BR019449

PATIENT
  Sex: Female
  Weight: 64 kg

DRUGS (5)
  1. RASILEZ AMLO [Suspect]
     Indication: HYPERTENSION
     Dosage: 1 DF (150 MG ALIS AND 5 MG AMLO), DAILY
  2. RASILEZ AMLO [Suspect]
     Dosage: 1 DF, RESTARTED
  3. DEPURA [Concomitant]
     Indication: VITAMIN D DEFICIENCY
     Dosage: 10 DF, DAILY
     Route: 048
  4. OSTEONUTRI [Concomitant]
     Indication: OSTEOPENIA
     Dosage: 600 MG, DAILY
     Route: 048
  5. PURAN T4 [Concomitant]
     Indication: HORMONE REPLACEMENT THERAPY
     Dosage: 1 DF (88MCG), DAILY
     Route: 048

REACTIONS (1)
  - Hearing impaired [Not Recovered/Not Resolved]
